FAERS Safety Report 11504546 (Version 1)
Quarter: 2015Q3

REPORT INFORMATION
  Report Type: Spontaneous
  Country: US (occurrence: US)
  Receive Date: 20150915
  Receipt Date: 20150915
  Transmission Date: 20151125
  Serious: No
  Sender: FDA-Public Use
  Company Number: US-ROCHE-803982

PATIENT
  Sex: Male

DRUGS (3)
  1. PEGASYS [Suspect]
     Active Substance: PEGINTERFERON ALFA-2A
     Indication: HEPATITIS C
     Dosage: DOSE AND FREQUENCY: NOT PROVIDED
     Route: 065
  2. RIBAVIRIN. [Suspect]
     Active Substance: RIBAVIRIN
     Indication: HEPATITIS C
     Dosage: DOSE AND FREQUENCY: NOT PROVIDED
     Route: 065
  3. TELAPREVIR [Concomitant]
     Active Substance: TELAPREVIR
     Indication: HEPATITIS C
     Dosage: DOSE AND FREQUENCY: NOT REPORTED, DRUG NAME REPORTED AS: INCIVEK.
     Route: 065

REACTIONS (3)
  - Abdominal pain [Unknown]
  - Viral infection [Unknown]
  - Arthralgia [Unknown]
